FAERS Safety Report 10151305 (Version 2)
Quarter: 2014Q2

REPORT INFORMATION
  Report Type: Report from Study
  Country: FR (occurrence: FR)
  Receive Date: 20140503
  Receipt Date: 20140506
  Transmission Date: 20141212
  Serious: Yes (Hospitalization)
  Sender: FDA-Public Use
  Company Number: PHHO2014FR006187

PATIENT
  Sex: 0

DRUGS (4)
  1. SOM230 [Suspect]
     Indication: NEUROENDOCRINE CARCINOMA
     Dosage: UNK
     Route: 030
     Dates: start: 20140409
  2. METFORMINE [Concomitant]
     Indication: DIABETES MELLITUS
  3. NOVONORM [Concomitant]
     Indication: DIABETES MELLITUS
     Dosage: UNK
     Dates: start: 20140129
  4. REPAGLINIDE [Concomitant]
     Indication: DIABETES MELLITUS

REACTIONS (1)
  - Systemic inflammatory response syndrome [Recovering/Resolving]
